FAERS Safety Report 7835470-X (Version None)
Quarter: 2011Q4

REPORT INFORMATION
  Report Type: 
  Country: None (occurrence: None)
  Receive Date: 20111020
  Receipt Date: 20111007
  Transmission Date: 20120403
  Serious: Yes (Other)
  Sender: FDA-Public Use
  Company Number: DSJ-2011-16525

PATIENT
  Age: 81 Year
  Sex: Female
  Weight: 69 kg

DRUGS (16)
  1. KAKKONTOU (HERBAL EXTRACT NOS) [Concomitant]
  2. OLMESARTAN MEDOXOMIL [Suspect]
     Indication: HYPERTENSION
     Dosage: 20 MG, PER ORAL
     Route: 048
     Dates: end: 20110808
  3. MYONAL (EPIRIZOLE HYDROCHLORIDE) [Concomitant]
  4. SHAKUYAKUKANZOUTOU (HERBAL EXTRACT NOS) [Concomitant]
  5. STRONGER NEO-MINOPHAGEN C (CYSTEINE, AMINOACETIC ACID, GLYCYRRHIZIC AC [Concomitant]
  6. PROTECADIN (LAFUTIDINE) [Concomitant]
  7. GASMOTIN (MOSAPRIDE CITRATE) [Concomitant]
  8. DIGOXIN [Concomitant]
  9. MOHRUS L (KETOPROFEN) [Concomitant]
  10. WARFARIN SODIUM [Concomitant]
  11. LASIX [Concomitant]
  12. DOXAZOSIN MESYLATE [Concomitant]
  13. UBILON (TIBOLONE) [Concomitant]
  14. MAGMITT (MAGNESIUM OXIDE) [Concomitant]
  15. PRAVASTATIN [Concomitant]
  16. EXCELASE (ENZYMES NOS) [Concomitant]

REACTIONS (4)
  - HYPOGLYCAEMIA [None]
  - MUSCLE SPASMS [None]
  - PURPURA [None]
  - SENSORY LOSS [None]
